FAERS Safety Report 7239578-1 (Version None)
Quarter: 2011Q1

REPORT INFORMATION
  Report Type: 
  Country: None (occurrence: None)
  Receive Date: 20110121
  Receipt Date: 20110114
  Transmission Date: 20110831
  Serious: No
  Sender: FDA-Public Use
  Company Number: US-B.I. PHARMACEUTICALS,INC./RIDGEFIELD-2011-BP-01303BP

PATIENT
  Age: 58 Year
  Sex: Female

DRUGS (11)
  1. TRAZADONE [Concomitant]
     Indication: INSOMNIA
     Dosage: 100 MG
     Route: 048
  2. LIDODERM [Concomitant]
     Indication: NECK PAIN
     Dosage: PRN/ TRANSDERMAL
     Route: 048
  3. PRADAXA [Suspect]
     Indication: ATRIAL FIBRILLATION
     Dosage: 300 MG
     Route: 048
     Dates: start: 20110108, end: 20110113
  4. ASA [Concomitant]
     Indication: PROPHYLAXIS
     Dosage: 81 MG
     Route: 048
  5. DYAZIDE [Concomitant]
     Indication: HYPERTENSION
     Dosage: 37.5/ 25MG
     Route: 048
  6. POTASSIUM CHLORIDE [Concomitant]
     Indication: PROPHYLAXIS
     Route: 048
  7. XANAX [Concomitant]
     Indication: ANXIETY
     Dosage: 0.5 MG
  8. NEXIUM [Concomitant]
     Indication: GASTROOESOPHAGEAL REFLUX DISEASE
     Dosage: 40 MG
     Route: 048
  9. URECHOLINE [Concomitant]
     Indication: BLADDER DISORDER
     Dosage: 100 MG
     Route: 048
  10. NEURONTIN [Concomitant]
     Indication: NECK PAIN
     Dosage: 1800 MG
     Route: 048
  11. VENTOLIN [Concomitant]
     Indication: ASTHMA
     Route: 048

REACTIONS (5)
  - INSOMNIA [None]
  - DIZZINESS [None]
  - CHEST PAIN [None]
  - DYSPEPSIA [None]
  - NAUSEA [None]
